FAERS Safety Report 19019340 (Version 2)
Quarter: 2021Q1

REPORT INFORMATION
  Report Type: Spontaneous
  Country: US (occurrence: US)
  Receive Date: 20210317
  Receipt Date: 20210322
  Transmission Date: 20210420
  Serious: Yes (Other)
  Sender: FDA-Public Use
  Company Number: US-MYLANLABS-2021M1015217

PATIENT
  Age: 68 Year
  Sex: Female
  Weight: 99.79 kg

DRUGS (3)
  1. EPINEPHRINE. [Suspect]
     Active Substance: EPINEPHRINE
     Indication: ANAPHYLACTIC REACTION
     Dosage: 0.3 MG (EVERY 5?15 MINUTES)
     Dates: start: 20210306, end: 20210306
  2. PREDNISONE. [Concomitant]
     Active Substance: PREDNISONE
     Dosage: UNK
     Route: 042
  3. PREDNISONE. [Concomitant]
     Active Substance: PREDNISONE
     Dosage: 2 DF, QD (4 DAY CYCLE, TAKES 2 IN MORNING WITH FOOD)
     Dates: start: 20210307

REACTIONS (8)
  - Anorectal discomfort [Recovered/Resolved]
  - Palpitations [Unknown]
  - Rectal haemorrhage [Recovered/Resolved]
  - Haematochezia [Recovered/Resolved]
  - Rash erythematous [Not Recovered/Not Resolved]
  - Drug intolerance [Unknown]
  - Therapeutic product effect incomplete [Unknown]
  - Fatigue [Unknown]

NARRATIVE: CASE EVENT DATE: 20210307
